FAERS Safety Report 7790041-9 (Version None)
Quarter: 2011Q3

REPORT INFORMATION
  Report Type: 
  Country: None (occurrence: None)
  Receive Date: 20110930
  Receipt Date: 20100803
  Transmission Date: 20111222
  Serious: No
  Sender: FDA-Public Use
  Company Number: US-ASTRAZENECA-2010SE24821

PATIENT
  Sex: Female
  Weight: 45.4 kg

DRUGS (4)
  1. FISH OIL [Concomitant]
  2. CALCIUM CARBONATE [Concomitant]
  3. VITAMIN TAB [Concomitant]
  4. ARIMIDEX [Suspect]
     Indication: BREAST OPERATION
     Route: 048

REACTIONS (5)
  - OSTEOPOROSIS [None]
  - MUSCULOSKELETAL PAIN [None]
  - DRUG TOLERANCE DECREASED [None]
  - STRESS [None]
  - ARTHRALGIA [None]
